FAERS Safety Report 4327590-1 (Version None)
Quarter: 2004Q1

REPORT INFORMATION
  Report Type: 
  Country: None (occurrence: None)
  Receive Date: 20040325
  Receipt Date: 20040316
  Transmission Date: 20041129
  Serious: No
  Sender: FDA-Public Use
  Company Number: 04H-035-0253799-00

PATIENT

DRUGS (8)
  1. LEUCOVORIN CALCIUM [Suspect]
     Indication: CHEMOTHERAPY
     Dosage: 20 MG/M2, DAILY FOR 5 DAYS, EVERY 3 WKS,AFTER RADIOTHERAPY, 3 CYCLE, INTRAVENOUS BOLUS
     Route: 040
  2. FLUOROURACIL [Suspect]
     Indication: CHEMOTHERAPY
     Dosage: 450 MG/M2, OVER 20 HRS, QDX5D, EVERY 3 WKS FOR 3 CYC, AFTER RADIOTHERAPY, INTRAVENOUS
     Route: 042
  3. IFOSFAMIDE [Suspect]
     Indication: CHEMOTHERAPY
     Dosage: 1.4M2, QDX5D, 4 HR. INF, EVRY3 WKS FOR 3 CYC,AFTER RADIOTHERAPY, INTRAVENOUS
     Route: 042
  4. CISPLATIN [Concomitant]
  5. IV FLUIDS [Concomitant]
  6. 5-HT3 ANTAGONIST [Concomitant]
  7. DEXAMETHASONE [Concomitant]
  8. MESNA [Concomitant]

REACTIONS (2)
  - DRUG TOXICITY [None]
  - LEUKOPENIA [None]
